FAERS Safety Report 8541931-0 (Version None)
Quarter: 2012Q3

REPORT INFORMATION
  Report Type: 
  Country: None (occurrence: None)
  Receive Date: 20120726
  Receipt Date: 20110914
  Transmission Date: 20120928
  Serious: No
  Sender: FDA-Public Use
  Company Number: US-ASTRAZENECA-2011SE55238

PATIENT
  Age: 54 Year
  Sex: Male
  Weight: 95.3 kg

DRUGS (6)
  1. SUCRALFATE [Concomitant]
     Indication: GASTRIC DISORDER
  2. OMEPRAZOLE [Concomitant]
     Indication: GASTRIC DISORDER
  3. SUCRALFATE [Concomitant]
     Indication: HERNIA
  4. COZAAR [Concomitant]
  5. GENERIC CELEXA [Concomitant]
  6. SEROQUEL [Suspect]
     Indication: SCHIZOPHRENIA
     Route: 048

REACTIONS (6)
  - MYALGIA [None]
  - HIATUS HERNIA [None]
  - ORAL DISORDER [None]
  - GASTROOESOPHAGEAL REFLUX DISEASE [None]
  - RETCHING [None]
  - WEIGHT DECREASED [None]
